FAERS Safety Report 11209376 (Version 1)
Quarter: 2015Q2

REPORT INFORMATION
  Report Type: Spontaneous
  Country: US (occurrence: US)
  Receive Date: 20150622
  Receipt Date: 20150622
  Transmission Date: 20150821
  Serious: Yes (Other)
  Sender: FDA-Public Use
  Company Number: US-GLAXOSMITHKLINE-A0065816A

PATIENT
  Age: 36 Year
  Sex: Female

DRUGS (3)
  1. ZYBAN [Suspect]
     Active Substance: BUPROPION HYDROCHLORIDE
     Dosage: UNK
     Dates: start: 1997
  2. DEPO-PROVERA [Concomitant]
     Active Substance: MEDROXYPROGESTERONE ACETATE
  3. ZYBAN [Suspect]
     Active Substance: BUPROPION HYDROCHLORIDE
     Indication: EX-TOBACCO USER
     Route: 048
     Dates: start: 19971222, end: 19980103

REACTIONS (26)
  - Aggression [Unknown]
  - Nausea [Unknown]
  - Migraine [Unknown]
  - Insomnia [Unknown]
  - Psychomotor hyperactivity [Unknown]
  - Agitation [Unknown]
  - Nervous system disorder [Unknown]
  - Anger [Unknown]
  - Amnesia [Unknown]
  - Suicidal ideation [Unknown]
  - Disturbance in attention [Unknown]
  - Serotonin syndrome [Unknown]
  - Disorientation [Unknown]
  - Breast pain [Unknown]
  - Cerebral hypoperfusion [Unknown]
  - Gastrointestinal disorder [Unknown]
  - Fluid retention [Unknown]
  - Tremor [Unknown]
  - Dizziness [Unknown]
  - Breast discharge [Unknown]
  - Nightmare [Not Recovered/Not Resolved]
  - Anxiety [Unknown]
  - Paranoia [Unknown]
  - Tinnitus [Unknown]
  - Performance status decreased [Unknown]
  - Seizure [Unknown]

NARRATIVE: CASE EVENT DATE: 199802
